FAERS Safety Report 5074121-7 (Version None)
Quarter: 2006Q3

REPORT INFORMATION
  Report Type: 
  Country: None (occurrence: None)
  Receive Date: 20060808
  Receipt Date: 20060727
  Transmission Date: 20061208
  Serious: Yes (Other)
  Sender: FDA-Public Use
  Company Number: AU-BRISTOL-MYERS SQUIBB COMPANY-13456694

PATIENT
  Age: 35 Year
  Sex: Male

DRUGS (5)
  1. REYATAZ [Suspect]
     Dates: start: 20041214
  2. DOXORUBICIN HCL [Suspect]
  3. RITONAVIR [Suspect]
     Route: 048
     Dates: start: 20041214
  4. CYCLOPHOSPHAMIDE [Suspect]
  5. PREDNISOLONE [Suspect]

REACTIONS (8)
  - ABDOMINAL DISTENSION [None]
  - ABDOMINAL PAIN UPPER [None]
  - CONSTIPATION [None]
  - HYPERHIDROSIS [None]
  - ILEUS [None]
  - LEUKOPENIA [None]
  - NAUSEA [None]
  - NEUTROPENIA [None]
